FAERS Safety Report 12405634 (Version 1)
Quarter: 2016Q2

REPORT INFORMATION
  Report Type: Spontaneous
  Country: US (occurrence: US)
  Receive Date: 20160526
  Receipt Date: 20160526
  Transmission Date: 20160815
  Serious: No
  Sender: FDA-Public Use
  Company Number: US-BIOGEN-2016BI00233285

PATIENT
  Sex: Male

DRUGS (1)
  1. TECFIDERA [Suspect]
     Active Substance: DIMETHYL FUMARATE
     Indication: MULTIPLE SCLEROSIS
     Route: 048
     Dates: start: 20160328

REACTIONS (6)
  - Dyspnoea [Unknown]
  - Limb discomfort [Unknown]
  - Burning sensation [Unknown]
  - Vomiting [Unknown]
  - Diarrhoea [Unknown]
  - Chest discomfort [Unknown]
